FAERS Safety Report 10369270 (Version 1)
Quarter: 2014Q1

REPORT INFORMATION
  Report Type: Spontaneous
  Country: US (occurrence: None)
  Receive Date: 20140306
  Receipt Date: 20140306
  Transmission Date: 20141002
  Serious: Yes (Other)
  Sender: FDA-Public Use
  Company Number: 163-21880-13024005

PATIENT
  Age: 62 Year
  Sex: Male

DRUGS (17)
  1. REVLIMID (LENALIDOMIDE) (CAPSULES) [Suspect]
     Indication: MYELOFIBROSIS
     Dosage: 5 MG, 21 IN 21 D, PO
     Route: 048
     Dates: start: 201204, end: 201212
  2. PREDNISONE (UNKNOWN) [Concomitant]
  3. CARVEDILOL (UNKNOWN) [Concomitant]
  4. LISINOPRIL (UNKNOWN) [Concomitant]
  5. NPH (ALCOMYXINE) (UNKNOWN) [Concomitant]
  6. AMLODIPINE (UNKNOWN) [Concomitant]
  7. CLONIDINE (UNKNOWN) [Concomitant]
  8. LEVOTHYROXINE (UNKNOWN) [Concomitant]
  9. TERAZOSIN (UNKNOWN) [Concomitant]
  10. GLIPIZIDE (UNKNOWN) [Concomitant]
  11. METFORMIN (UNKNOWN) [Concomitant]
  12. FUROSEMIDE (UNKNOWN) [Concomitant]
  13. KCL (POTASSIUM CHLORIDE) (UNKNOWN) [Concomitant]
  14. HYDROCODONE/APAP (VICODIN) (UNKNOWN) [Concomitant]
  15. DOCUSATE SODIUM (UNKNOWN) [Concomitant]
  16. ISONIAZID (UNKNOWN) [Concomitant]
  17. ASA (ACETYLSALICYLIC ACID) (UNKNOWN) [Concomitant]

REACTIONS (2)
  - Bone marrow failure [None]
  - Fatigue [None]
